FAERS Safety Report 10686290 (Version 1)
Quarter: 2014Q4

REPORT INFORMATION
  Report Type: Spontaneous
  Country: US (occurrence: US)
  Receive Date: 20141231
  Receipt Date: 20141231
  Transmission Date: 20150529
  Serious: No
  Sender: FDA-Public Use
  Company Number: US-GLAXOSMITHKLINE-US2014GSK021137

PATIENT
  Age: 85 Year
  Sex: Female

DRUGS (3)
  1. ADVAIR DISKUS [Suspect]
     Active Substance: FLUTICASONE PROPIONATE\SALMETEROL XINAFOATE
     Indication: ASTHMA
     Dosage: 1 PUFF(S), BID
     Route: 055
     Dates: start: 2013
  2. ADVAIR DISKUS [Suspect]
     Active Substance: FLUTICASONE PROPIONATE\SALMETEROL XINAFOATE
     Dosage: 1 PUFF(S), TID
     Route: 055
  3. NEBULIZER (NAME UNKNOWN) [Concomitant]
     Dosage: UNK, PRN

REACTIONS (3)
  - Gait disturbance [Recovering/Resolving]
  - Drug administration error [Unknown]
  - Asthma [Unknown]

NARRATIVE: CASE EVENT DATE: 201409
